FAERS Safety Report 21932139 (Version 2)
Quarter: 2023Q1

REPORT INFORMATION
  Report Type: Spontaneous
  Country: US (occurrence: US)
  Receive Date: 20230131
  Receipt Date: 20230223
  Transmission Date: 20230418
  Serious: Yes (Other)
  Sender: FDA-Public Use
  Company Number: US-ELI_LILLY_AND_COMPANY-US202301008734

PATIENT
  Sex: Male

DRUGS (2)
  1. TRULICITY [Suspect]
     Active Substance: DULAGLUTIDE
     Indication: Bone density decreased
     Dosage: 0.75 MG, UNKNOWN
     Route: 065
     Dates: start: 20211213, end: 202302
  2. NOVOLOG [Concomitant]
     Active Substance: INSULIN ASPART
     Indication: Product used for unknown indication

REACTIONS (6)
  - Fall [Unknown]
  - Osteonecrosis [Unknown]
  - Vascular injury [Unknown]
  - Poor peripheral circulation [Unknown]
  - Spinal fracture [Unknown]
  - Off label use [Unknown]
